FAERS Safety Report 14837890 (Version 1)
Quarter: 2018Q2

REPORT INFORMATION
  Report Type: Spontaneous
  Country: BR (occurrence: BR)
  Receive Date: 20180502
  Receipt Date: 20180502
  Transmission Date: 20180711
  Serious: Yes (Other)
  Sender: FDA-Public Use
  Company Number: BR-ALEXION PHARMACEUTICALS INC.-A201805075

PATIENT
  Age: 32 Year
  Sex: Male

DRUGS (2)
  1. SOLIRIS [Suspect]
     Active Substance: ECULIZUMAB
     Dosage: 900 MG, Q2W
     Route: 042
     Dates: start: 20150720
  2. SOLIRIS [Suspect]
     Active Substance: ECULIZUMAB
     Indication: PAROXYSMAL NOCTURNAL HAEMOGLOBINURIA
     Dosage: 600 MG, QW
     Route: 042
     Dates: start: 20150622, end: 20150713

REACTIONS (10)
  - Haemorrhage [Not Recovered/Not Resolved]
  - Impaired work ability [Unknown]
  - Renal pain [Unknown]
  - Malaise [Unknown]
  - Haemoglobin decreased [Unknown]
  - Yellow skin [Unknown]
  - Headache [Unknown]
  - Pain [Unknown]
  - Haemolysis [Unknown]
  - Asthenia [Unknown]

NARRATIVE: CASE EVENT DATE: 201802
